FAERS Safety Report 9679466 (Version 1)
Quarter: 2013Q4

REPORT INFORMATION
  Report Type: Spontaneous
  Country: DE (occurrence: FR)
  Receive Date: 20131109
  Receipt Date: 20131109
  Transmission Date: 20140711
  Serious: Yes (Hospitalization)
  Sender: FDA-Public Use
  Company Number: US-MERZ PHARMACEUTICALS, LLC DRUG SAFETY-13MRZ-00194

PATIENT
  Age: 61 Year
  Sex: Male

DRUGS (1)
  1. AETHOXYSKLEROL [Suspect]
     Indication: VARICOSE VEIN
     Dosage: 1 AMPULE (2 ML)
     Dates: start: 20130530

REACTIONS (2)
  - Thrombophlebitis superficial [Recovered/Resolved]
  - Ischaemic stroke [Recovered/Resolved]
